FAERS Safety Report 16917195 (Version 3)
Quarter: 2019Q4

REPORT INFORMATION
  Report Type: Spontaneous
  Country: US (occurrence: US)
  Receive Date: 20191015
  Receipt Date: 20191115
  Transmission Date: 20200122
  Serious: Yes (Death, Life-Threatening, Hospitalization, Other)
  Sender: FDA-Public Use
  Company Number: US-MSN LABORATORIES PRIVATE LIMITED-2075638

PATIENT
  Age: 71 Year
  Sex: Female

DRUGS (2)
  1. CAPECITABINE. [Suspect]
     Active Substance: CAPECITABINE
     Indication: BREAST CANCER
     Route: 048
     Dates: start: 201907, end: 201907
  2. CAPECITABINE  (MYLAN) [Suspect]
     Active Substance: CAPECITABINE
     Route: 048
     Dates: start: 201907, end: 201907

REACTIONS (17)
  - Death [Fatal]
  - Asthenia [Recovered/Resolved]
  - Feeding disorder [Recovered/Resolved]
  - Lip swelling [Recovered/Resolved]
  - Impaired driving ability [Recovered/Resolved]
  - Trismus [Recovered/Resolved]
  - Eye contusion [Recovered/Resolved]
  - Pleural effusion [Unknown]
  - Fatigue [Recovered/Resolved]
  - Nausea [Recovered/Resolved]
  - Decreased appetite [Unknown]
  - Lethargy [Recovered/Resolved]
  - Ascites [Recovered/Resolved]
  - Diarrhoea [Recovered/Resolved]
  - Gait inability [Recovered/Resolved]
  - Apparent life threatening event [Recovered/Resolved]
  - Lip discolouration [Recovered/Resolved]
